FAERS Safety Report 6754145-1 (Version None)
Quarter: 2010Q2

REPORT INFORMATION
  Report Type: 
  Country: None (occurrence: None)
  Receive Date: 20100601
  Receipt Date: 20100517
  Transmission Date: 20101027
  Serious: No
  Sender: FDA-Public Use
  Company Number: 2010-1389

PATIENT
  Age: 27 Year
  Sex: Male

DRUGS (1)
  1. SOMATULINE DEPOT [Suspect]
     Indication: ACROMEGALY
     Dosage: 60 MG (60 MG, 1 IN 28 D), SUBCUTANEOUS, DRUG INTERRUPTED
     Route: 058
     Dates: start: 20100323

REACTIONS (7)
  - ABDOMINAL PAIN [None]
  - DIARRHOEA [None]
  - HAEMOPTYSIS [None]
  - HAEMORRHOIDS [None]
  - HEADACHE [None]
  - NAUSEA [None]
  - PROCTALGIA [None]
